FAERS Safety Report 7054004-3 (Version None)
Quarter: 2010Q4

REPORT INFORMATION
  Report Type: 
  Country: None (occurrence: None)
  Receive Date: 20101020
  Receipt Date: 20101011
  Transmission Date: 20110411
  Serious: No
  Sender: FDA-Public Use
  Company Number: US-PFIZER INC-2010128888

PATIENT
  Sex: Male

DRUGS (3)
  1. LYRICA [Suspect]
     Indication: SPINAL COLUMN STENOSIS
     Dosage: 100 MG, 3X/DAY
  2. LYRICA [Suspect]
     Indication: MUSCULOSKELETAL PAIN
  3. LYRICA [Suspect]

REACTIONS (1)
  - DRUG INEFFECTIVE [None]
